FAERS Safety Report 20584033 (Version 1)
Quarter: 2022Q1

REPORT INFORMATION
  Report Type: Spontaneous
  Country: US (occurrence: None)
  Receive Date: 20220311
  Receipt Date: 20220311
  Transmission Date: 20220423
  Serious: Yes (Hospitalization)
  Sender: FDA-Public Use
  Company Number: None

PATIENT
  Age: 77 Year
  Sex: Male

DRUGS (1)
  1. APIXABAN [Suspect]
     Active Substance: APIXABAN
     Indication: Atrial fibrillation
     Dates: start: 20210101, end: 20220302

REACTIONS (4)
  - Lower gastrointestinal haemorrhage [None]
  - Diverticulum intestinal haemorrhagic [None]
  - Gastritis [None]
  - Hiatus hernia [None]

NARRATIVE: CASE EVENT DATE: 20211201
